FAERS Safety Report 9740208 (Version 1)
Quarter: 2013Q4

REPORT INFORMATION
  Report Type: Report from Study
  Country: AU (occurrence: AU)
  Receive Date: 20131209
  Receipt Date: 20131209
  Transmission Date: 20140711
  Serious: Yes (Death)
  Sender: FDA-Public Use
  Company Number: AU-PFIZER INC-2013345830

PATIENT
  Sex: 0

DRUGS (1)
  1. FLUOROURACIL [Suspect]
     Indication: ANAL CANCER
     Dosage: UNK

REACTIONS (1)
  - Sudden death [Fatal]
